FAERS Safety Report 16935446 (Version 4)
Quarter: 2019Q4

REPORT INFORMATION
  Report Type: Spontaneous
  Country: CN (occurrence: CN)
  Receive Date: 20191018
  Receipt Date: 20191113
  Transmission Date: 20200122
  Serious: Yes (Hospitalization, Other)
  Sender: FDA-Public Use
  Company Number: CN-BRACCO-2019CN05233

PATIENT
  Age: 76 Year
  Sex: Female

DRUGS (1)
  1. MULTIHANCE [Suspect]
     Active Substance: GADOBENATE DIMEGLUMINE
     Dosage: 10 ML, SINGLE
     Route: 042
     Dates: start: 20191009, end: 20191009

REACTIONS (10)
  - Foaming at mouth [Recovering/Resolving]
  - Oxygen saturation immeasurable [Recovering/Resolving]
  - Aphasia [Recovering/Resolving]
  - Gait inability [Recovering/Resolving]
  - Blood pressure immeasurable [Recovering/Resolving]
  - Loss of consciousness [Recovered/Resolved]
  - Bradycardia [Recovering/Resolving]
  - Cyanosis [Recovering/Resolving]
  - Seizure [Recovering/Resolving]
  - Urinary incontinence [Recovering/Resolving]

NARRATIVE: CASE EVENT DATE: 201910
